FAERS Safety Report 23600250 (Version 1)
Quarter: 2024Q1

REPORT INFORMATION
  Report Type: Spontaneous
  Country: GB (occurrence: GB)
  Receive Date: 20240306
  Receipt Date: 20240306
  Transmission Date: 20240409
  Serious: Yes (Other)
  Sender: FDA-Public Use
  Company Number: None

PATIENT
  Age: 44 Year

DRUGS (1)
  1. OVEX [Suspect]
     Active Substance: MEBENDAZOLE
     Indication: Product used for unknown indication
     Route: 065

REACTIONS (1)
  - Haematochezia [Unknown]
